FAERS Safety Report 5130940-X (Version None)
Quarter: 2006Q3

REPORT INFORMATION
  Report Type: 
  Country: None (occurrence: None)
  Receive Date: 20060829
  Receipt Date: 20060706
  Transmission Date: 20061208
  Serious: No
  Sender: FDA-Public Use
  Company Number: PHEH2006US07624

PATIENT
  Age: 80 Year
  Sex: Female

DRUGS (8)
  1. EXJADE [Suspect]
     Indication: SERUM FERRITIN INCREASED
     Dosage: SEE IMAGE
     Route: 048
     Dates: start: 20051201, end: 20060625
  2. EXJADE [Suspect]
     Indication: SERUM FERRITIN INCREASED
     Dosage: SEE IMAGE
     Route: 048
     Dates: start: 20060701, end: 20060701
  3. ACTONEL [Concomitant]
  4. CALCIUM (CALCIUM) [Concomitant]
  5. MULTIVITAMINS (ASCORBIC ACID, ERGOCALCIFEROL, FOLIC ACID, NICOTINAMIDE [Concomitant]
  6. LEVOTHYROXINE SODIUM [Concomitant]
  7. VITAMIN D [Concomitant]
  8. ASPIRIN [Concomitant]

REACTIONS (5)
  - CONDITION AGGRAVATED [None]
  - HEADACHE [None]
  - MUSCLE SPASMS [None]
  - NAUSEA [None]
  - PHOTOPHOBIA [None]
